FAERS Safety Report 14402298 (Version 1)
Quarter: 2018Q1

REPORT INFORMATION
  Report Type: Spontaneous
  Country: US (occurrence: US)
  Receive Date: 20180116
  Receipt Date: 20180116
  Transmission Date: 20180509
  Serious: Yes (Life-Threatening)
  Sender: FDA-Public Use
  Company Number: None

PATIENT
  Age: 43 Year
  Sex: Female
  Weight: 67.5 kg

DRUGS (2)
  1. AZO URINARY PAIN RELIEF MAXIMUM STRENGTH [Suspect]
     Active Substance: PHENAZOPYRIDINE HYDROCHLORIDE
     Indication: URINARY TRACT INFECTION
     Dosage: ?          QUANTITY:2 TABLET(S);?
     Route: 048
     Dates: end: 20180115
  2. LISINOPRIL. [Concomitant]
     Active Substance: LISINOPRIL

REACTIONS (5)
  - Swelling face [None]
  - Dyspnoea [None]
  - Hypertension [None]
  - Reaction to azo-dyes [None]
  - Urticaria [None]

NARRATIVE: CASE EVENT DATE: 20180115
